FAERS Safety Report 18550533 (Version 1)
Quarter: 2020Q4

REPORT INFORMATION
  Report Type: Spontaneous
  Country: AU (occurrence: AU)
  Receive Date: 20201126
  Receipt Date: 20201126
  Transmission Date: 20210114
  Serious: Yes (Other)
  Sender: FDA-Public Use
  Company Number: AU-JNJFOC-20201136365

PATIENT

DRUGS (1)
  1. PARACETAMOL [Suspect]
     Active Substance: ACETAMINOPHEN
     Indication: PAIN
     Route: 065

REACTIONS (6)
  - Nausea [Recovered/Resolved]
  - Tachycardia [Unknown]
  - Alanine aminotransferase increased [Unknown]
  - Vomiting [Recovered/Resolved]
  - Drug level increased [Unknown]
  - Aspartate aminotransferase increased [Unknown]
